FAERS Safety Report 18814102 (Version 1)
Quarter: 2021Q1

REPORT INFORMATION
  Report Type: Other
  Country: PL (occurrence: PL)
  Receive Date: 20210201
  Receipt Date: 20210201
  Transmission Date: 20210419
  Serious: Yes (Hospitalization)
  Sender: FDA-Public Use
  Company Number: PL-ORCHID HEALTHCARE-2106086

PATIENT
  Age: 43 Year
  Sex: Male

DRUGS (1)
  1. LEVOFLOXACIN. [Suspect]
     Active Substance: LEVOFLOXACIN
     Indication: PRODUCT USED FOR UNKNOWN INDICATION
     Route: 048

REACTIONS (28)
  - Amnesia [Recovering/Resolving]
  - Urinary tract discomfort [Recovering/Resolving]
  - Tendon rupture [Recovering/Resolving]
  - Food allergy [Recovering/Resolving]
  - Skin discomfort [Recovering/Resolving]
  - Demyelination [Recovering/Resolving]
  - Fatigue [Recovering/Resolving]
  - Joint injury [Recovering/Resolving]
  - Blood folate decreased [Recovering/Resolving]
  - Anxiety [Recovering/Resolving]
  - Tendon injury [Recovering/Resolving]
  - Muscle injury [Recovering/Resolving]
  - Speech disorder [Recovering/Resolving]
  - Visual impairment [Recovering/Resolving]
  - Depression [Recovering/Resolving]
  - Neck pain [Recovering/Resolving]
  - Muscular weakness [Recovering/Resolving]
  - Muscle atrophy [Recovering/Resolving]
  - Neurotransmitter level altered [Recovering/Resolving]
  - Impaired work ability [Unknown]
  - Unevaluable event [Recovering/Resolving]
  - Pain in extremity [Recovering/Resolving]
  - Tendon disorder [Recovering/Resolving]
  - Vitamin B12 decreased [Recovering/Resolving]
  - Blood homocysteine decreased [Recovering/Resolving]
  - Paraesthesia [Recovering/Resolving]
  - Confusional state [Recovering/Resolving]
  - Headache [Unknown]
